FAERS Safety Report 18453220 (Version 1)
Quarter: 2020Q4

REPORT INFORMATION
  Report Type: Spontaneous
  Country: BG (occurrence: BG)
  Receive Date: 20201102
  Receipt Date: 20201102
  Transmission Date: 20210114
  Serious: Yes (Hospitalization, Other)
  Sender: FDA-Public Use
  Company Number: BG-BIOVITRUM-2020BG5820

PATIENT
  Sex: Male

DRUGS (2)
  1. SYNAGIS [Suspect]
     Active Substance: PALIVIZUMAB
     Indication: PRODUCT USED FOR UNKNOWN INDICATION
     Route: 030
     Dates: start: 201810, end: 201902
  2. SYNAGIS [Suspect]
     Active Substance: PALIVIZUMAB
     Dosage: SECOND SEASON
     Route: 030

REACTIONS (4)
  - Bronchiolitis [Unknown]
  - Pneumonia [Recovered/Resolved]
  - Respiratory tract infection [Unknown]
  - Developmental delay [Unknown]

NARRATIVE: CASE EVENT DATE: 2019
